FAERS Safety Report 7915169-1 (Version None)
Quarter: 2011Q4

REPORT INFORMATION
  Report Type: 
  Country: None (occurrence: None)
  Receive Date: 20111115
  Receipt Date: 20111109
  Transmission Date: 20120403
  Serious: Yes (Hospitalization, Other)
  Sender: FDA-Public Use
  Company Number: US-ALEXION-A201101344

PATIENT
  Sex: Female
  Weight: 59.4 kg

DRUGS (6)
  1. PREDNISONE [Concomitant]
     Indication: ANAEMIA
     Dosage: 20 MG QD
     Route: 048
     Dates: start: 20110207
  2. LEVAQUIN [Concomitant]
     Dosage: 500 MG UNK
  3. LOVENOX [Concomitant]
     Indication: ANTICOAGULANT THERAPY
     Dosage: 40 MG QD
     Route: 058
     Dates: start: 20110830
  4. CALCIUM + VITAMIN D [Concomitant]
     Dosage: 1200 MG BID
     Route: 048
  5. FOLIC ACID [Concomitant]
     Indication: ANAEMIA
     Dosage: 1 MG QD
     Route: 048
  6. SOLIRIS [Suspect]
     Indication: PAROXYSMAL NOCTURNAL HAEMOGLOBINURIA
     Dosage: 900 MG, Q2W
     Route: 042
     Dates: start: 20090917

REACTIONS (6)
  - BLOOD BILIRUBIN ABNORMAL [None]
  - PORTAL VEIN THROMBOSIS [None]
  - STENT REMOVAL [None]
  - CHOLELITHIASIS [None]
  - ANAEMIA [None]
  - BILIARY TRACT DISORDER [None]
